FAERS Safety Report 9422669 (Version 1)
Quarter: 2013Q3

REPORT INFORMATION
  Report Type: Not Available
  Country: AU (occurrence: AU)
  Receive Date: 20130726
  Receipt Date: 20130726
  Transmission Date: 20140515
  Serious: Yes (Death)
  Sender: FDA-Public Use
  Company Number: AU-PURDUE-USA-2013-0104880

PATIENT
  Sex: Female

DRUGS (9)
  1. OXYCONTIN TABLETS [Suspect]
     Indication: PRODUCT USED FOR UNKNOWN INDICATION
  2. PRADAXA [Suspect]
     Indication: CEREBROVASCULAR ACCIDENT PROPHYLAXIS
     Dosage: 220 MG, DAILY
     Dates: start: 20110816
  3. AVAPRO HCT [Suspect]
     Indication: PRODUCT USED FOR UNKNOWN INDICATION
  4. CALCIUM /00060701/ [Suspect]
     Indication: PRODUCT USED FOR UNKNOWN INDICATION
  5. DIGOXIN [Suspect]
     Indication: PRODUCT USED FOR UNKNOWN INDICATION
  6. FOSAMAX OW [Suspect]
     Indication: PRODUCT USED FOR UNKNOWN INDICATION
  7. LIPITOR [Suspect]
     Indication: PRODUCT USED FOR UNKNOWN INDICATION
  8. METFORMIN /00082702/ [Suspect]
     Indication: PRODUCT USED FOR UNKNOWN INDICATION
  9. FISH OIL [Concomitant]

REACTIONS (2)
  - Pneumonia aspiration [Fatal]
  - Myocardial infarction [Fatal]
